FAERS Safety Report 4379108-5 (Version None)
Quarter: 2004Q2

REPORT INFORMATION
  Report Type: 
  Country: None (occurrence: None)
  Receive Date: 20040610
  Receipt Date: 20040527
  Transmission Date: 20050107
  Serious: Yes (Other)
  Sender: FDA-Public Use
  Company Number: GB-JNJFOC-20040600015

PATIENT
  Age: 15 Year
  Sex: Female
  Weight: 78 kg

DRUGS (1)
  1. TOPAMAX [Suspect]
     Indication: EPILEPSY
     Dosage: 100 MG, 2 IN 1 DAY, ORAL
     Route: 048
     Dates: start: 20030820, end: 20040315

REACTIONS (3)
  - EFFUSION [None]
  - IRITIS [None]
  - SCLERITIS [None]
